FAERS Safety Report 18464885 (Version 3)
Quarter: 2021Q2

REPORT INFORMATION
  Report Type: Other
  Country: CA (occurrence: CA)
  Receive Date: 20201105
  Receipt Date: 20210623
  Transmission Date: 20210717
  Serious: No
  Sender: FDA-Public Use
  Company Number: CA-ROCHE-2453592

PATIENT
  Age: 30 Year
  Sex: Female

DRUGS (9)
  1. LITHIUM. [Concomitant]
     Active Substance: LITHIUM
  2. EFFEXOR [Concomitant]
     Active Substance: VENLAFAXINE HYDROCHLORIDE
  3. GABAPENTIN. [Concomitant]
     Active Substance: GABAPENTIN
  4. OCREVUS [Suspect]
     Active Substance: OCRELIZUMAB
     Indication: RELAPSING-REMITTING MULTIPLE SCLEROSIS
     Dosage: 300 MG AT DAY 0 AND 14, THEN 600 MG EVERY 6 MONTH
     Route: 042
     Dates: start: 20181009
  5. CLONAZEPAM. [Concomitant]
     Active Substance: CLONAZEPAM
     Dosage: 1 IN AM AND 1 IN LUNCH
  6. REACTINE [CETIRIZINE HYDROCHLORIDE] [Concomitant]
     Active Substance: CETIRIZINE HYDROCHLORIDE
  7. MIRENA [Concomitant]
     Active Substance: LEVONORGESTREL
  8. ABILIFY [Concomitant]
     Active Substance: ARIPIPRAZOLE
  9. OLANZAPINE. [Concomitant]
     Active Substance: OLANZAPINE

REACTIONS (14)
  - Nasopharyngitis [Recovering/Resolving]
  - Perioral dermatitis [Not Recovered/Not Resolved]
  - Arthralgia [Not Recovered/Not Resolved]
  - Blood test abnormal [Unknown]
  - Pain [Not Recovered/Not Resolved]
  - Influenza [Recovered/Resolved]
  - Hypersomnia [Unknown]
  - T-lymphocyte count decreased [Unknown]
  - Pain [Not Recovered/Not Resolved]
  - Pruritus [Not Recovered/Not Resolved]
  - Fatigue [Not Recovered/Not Resolved]
  - B-lymphocyte count increased [Unknown]
  - Lymphocyte count decreased [Unknown]
  - Tremor [Not Recovered/Not Resolved]

NARRATIVE: CASE EVENT DATE: 201904
